FAERS Safety Report 4437846-X (Version None)
Quarter: 2004Q3

REPORT INFORMATION
  Report Type: 
  Country: None (occurrence: None)
  Receive Date: 20040831
  Receipt Date: 20040127
  Transmission Date: 20050211
  Serious: Yes (Death, Hospitalization, Other)
  Sender: FDA-Public Use
  Company Number: US-AMGEN-US065305

PATIENT
  Sex: Male

DRUGS (7)
  1. ETANERCEPT [Suspect]
     Indication: PULMONARY FIBROSIS
     Route: 058
     Dates: start: 20031213
  2. OXYGEN [Concomitant]
  3. LOPRESSOR [Concomitant]
     Dates: start: 20020601
  4. ECOTRIN [Concomitant]
     Dates: start: 20020601
  5. MULTI-VITAMINS [Concomitant]
     Dates: start: 20020601
  6. PRAVACHOL [Concomitant]
     Dates: start: 20020601
  7. INTERFERON [Concomitant]

REACTIONS (13)
  - ACUTE RESPIRATORY DISTRESS SYNDROME [None]
  - ACUTE RESPIRATORY FAILURE [None]
  - ATRIAL FIBRILLATION [None]
  - BACTERIAL INFECTION [None]
  - CONDITION AGGRAVATED [None]
  - ELECTROCARDIOGRAM ST SEGMENT DEPRESSION [None]
  - HYPOTENSION [None]
  - INTERSTITIAL LUNG DISEASE [None]
  - PNEUMONIA [None]
  - RENAL FAILURE ACUTE [None]
  - RENAL TUBULAR NECROSIS [None]
  - SEPSIS [None]
  - SPUTUM CULTURE POSITIVE [None]
